FAERS Safety Report 20823916 (Version 1)
Quarter: 2022Q2

REPORT INFORMATION
  Report Type: Spontaneous
  Country: DE (occurrence: DE)
  Receive Date: 20220513
  Receipt Date: 20220513
  Transmission Date: 20220720
  Serious: Yes (Death, Other)
  Sender: FDA-Public Use
  Company Number: DE-Shilpa Medicare Limited-SML-DE-2022-00511

PATIENT

DRUGS (4)
  1. IMATINIB [Suspect]
     Active Substance: IMATINIB
     Indication: Infantile fibromatosis
  2. VINCRISTINE [Suspect]
     Active Substance: VINCRISTINE
     Indication: Infantile fibromatosis
  3. DACTINOMYCIN [Suspect]
     Active Substance: DACTINOMYCIN
     Indication: Infantile fibromatosis
  4. CYCLOPHOSPHAMIDE [Suspect]
     Active Substance: CYCLOPHOSPHAMIDE
     Indication: Infantile fibromatosis

REACTIONS (2)
  - Disease progression [Fatal]
  - Drug ineffective [Unknown]
